FAERS Safety Report 7330651-6 (Version None)
Quarter: 2011Q1

REPORT INFORMATION
  Report Type: 
  Country: None (occurrence: None)
  Receive Date: 20110225
  Receipt Date: 20110225
  Transmission Date: 20110831
  Serious: Yes (Hospitalization)
  Sender: FDA-Public Use
  Company Number: None

PATIENT
  Age: 27 Year
  Sex: Male

DRUGS (2)
  1. INVEGA SUSTENNA [Suspect]
     Indication: SCHIZOPHRENIA
     Dosage: 156MG ONCE IM
     Route: 030
     Dates: start: 20110208, end: 20110208
  2. INVEGA SUSTENNA [Suspect]
     Dosage: 117MG MONTHLY IM
     Route: 030
     Dates: start: 20110115, end: 20110215

REACTIONS (3)
  - MYALGIA [None]
  - PYREXIA [None]
  - POLYURIA [None]
